FAERS Safety Report 8541911-5 (Version None)
Quarter: 2012Q3

REPORT INFORMATION
  Report Type: 
  Country: None (occurrence: None)
  Receive Date: 20120726
  Receipt Date: 20110912
  Transmission Date: 20120928
  Serious: No
  Sender: FDA-Public Use
  Company Number: US-ASTRAZENECA-2011SE54674

PATIENT
  Age: 50 Year
  Sex: Male
  Weight: 86.2 kg

DRUGS (5)
  1. XENEX [Concomitant]
  2. LUVOXAMINE MALEATE [Concomitant]
  3. SEROQUEL [Suspect]
     Indication: PARANOIA
     Route: 048
     Dates: start: 20090101
  4. AMBIEN [Concomitant]
     Indication: SLEEP DISORDER
  5. ATENOLOL [Concomitant]
     Indication: BLOOD PRESSURE ABNORMAL

REACTIONS (9)
  - ANXIETY DISORDER [None]
  - THROMBOANGIITIS OBLITERANS [None]
  - AMNESIA [None]
  - WEIGHT INCREASED [None]
  - ACTIVITIES OF DAILY LIVING IMPAIRED [None]
  - POST-TRAUMATIC STRESS DISORDER [None]
  - NERVOUSNESS [None]
  - DRUG DOSE OMISSION [None]
  - FEAR [None]
